FAERS Safety Report 16869376 (Version 1)
Quarter: 2019Q3

REPORT INFORMATION
  Report Type: Report from Study
  Country: DE (occurrence: DE)
  Receive Date: 20190930
  Receipt Date: 20190930
  Transmission Date: 20191005
  Serious: Yes (Other)
  Sender: FDA-Public Use
  Company Number: DE-PFIZER INC-2004114149

PATIENT
  Age: 75 Year
  Sex: Female

DRUGS (3)
  1. SANDOSTATIN [Concomitant]
     Active Substance: OCTREOTIDE ACETATE
     Indication: ILL-DEFINED DISORDER
     Dosage: 20 MG, UNK
     Route: 065
     Dates: end: 200311
  2. PRAVIDEL [Concomitant]
     Indication: ILL-DEFINED DISORDER
     Dosage: 30 MG, UNK
     Route: 065
     Dates: end: 1998
  3. PEGVISOMANT [Suspect]
     Active Substance: PEGVISOMANT
     Indication: ACROMEGALY
     Dosage: 10 MG, 1X/DAY
     Route: 058
     Dates: start: 20031127

REACTIONS (1)
  - Neoplasm progression [Recovered/Resolved]

NARRATIVE: CASE EVENT DATE: 20041112
